FAERS Safety Report 10775605 (Version 2)
Quarter: 2015Q1

REPORT INFORMATION
  Report Type: Spontaneous
  Country: GB (occurrence: None)
  Receive Date: 20150205
  Receipt Date: 20150218
  Transmission Date: 20150721
  Serious: Yes (Other)
  Sender: FDA-Public Use
  Company Number: GB-DEXPHARM-20150048

PATIENT
  Age: 72 Year
  Sex: Female

DRUGS (6)
  1. TEVA UK ANASTROZOLE [Suspect]
     Active Substance: ANASTROZOLE
     Indication: BREAST CANCER
     Route: 048
     Dates: start: 20120402, end: 20130804
  2. ACCORD HEALTHCARE ANASTROZOLE [Suspect]
     Active Substance: ANASTROZOLE
     Indication: BREAST CANCER
     Route: 048
     Dates: start: 20130805, end: 20130902
  3. RANITIDINE [Concomitant]
     Active Substance: RANITIDINE\RANITIDINE HYDROCHLORIDE
  4. OMEPRAZOLE. [Suspect]
     Active Substance: OMEPRAZOLE
     Indication: DYSPEPSIA
     Dates: start: 20120604, end: 20120624
  5. VITAMIN B12 [Concomitant]
     Active Substance: CYANOCOBALAMIN
  6. ZINC [Concomitant]
     Active Substance: ZINC\ZINC CHLORIDE

REACTIONS (50)
  - Alopecia [None]
  - Magnesium deficiency [None]
  - Musculoskeletal stiffness [None]
  - Muscle swelling [None]
  - Diarrhoea [None]
  - Tendon disorder [None]
  - Gastric disorder [None]
  - Emotional disorder [None]
  - Vomiting [None]
  - Peripheral swelling [None]
  - Pruritus generalised [None]
  - Hiatus hernia [None]
  - Balance disorder [None]
  - Paraesthesia [None]
  - Skin disorder [None]
  - Hypoaesthesia oral [None]
  - Skin atrophy [None]
  - Asthenia [None]
  - Macrocytosis [None]
  - Muscle tightness [None]
  - Product substitution issue [None]
  - Urinary tract infection [None]
  - Muscular weakness [None]
  - Muscle strain [None]
  - Faecal incontinence [None]
  - Muscle rupture [None]
  - Dry skin [None]
  - Hyperaesthesia [None]
  - Lymphadenopathy [None]
  - Axillary mass [None]
  - Menopause [None]
  - Gait disturbance [None]
  - Dysstasia [None]
  - Vision blurred [None]
  - Haemorrhage [None]
  - Fall [None]
  - Urinary incontinence [None]
  - Drug ineffective [None]
  - Dyspepsia [None]
  - Burning sensation [None]
  - Joint stiffness [None]
  - Insomnia [None]
  - Abnormal faeces [None]
  - Arthralgia [None]
  - Pain in extremity [None]
  - Dry mouth [None]
  - Myalgia [None]
  - Vulvovaginal dryness [None]
  - Paraesthesia oral [None]
  - Wrist fracture [None]

NARRATIVE: CASE EVENT DATE: 2012
